FAERS Safety Report 6275980-2 (Version None)
Quarter: 2009Q3

REPORT INFORMATION
  Report Type: 
  Country: None (occurrence: None)
  Receive Date: 20090720
  Receipt Date: 20090702
  Transmission Date: 20100115
  Serious: Yes (Hospitalization)
  Sender: FDA-Public Use
  Company Number: 2009AL000986

PATIENT
  Age: 73 Year
  Sex: Male

DRUGS (14)
  1. DIGOXIN [Suspect]
     Indication: ARRHYTHMIA
     Dosage: 0.25MG, DAILY, PO
     Route: 048
     Dates: start: 20030101, end: 20080731
  2. CEPHALEXIN [Concomitant]
  3. DIAZEPAM [Concomitant]
  4. SOTALOL [Concomitant]
  5. DOXYCYCL [Concomitant]
  6. WARFARIN SODIUM [Concomitant]
  7. KLOR-CON [Concomitant]
  8. POTASSIUM CHLORIDE [Concomitant]
  9. AMOXICILLIN [Concomitant]
  10. ATACAND [Concomitant]
  11. PHENAZOPYRID [Concomitant]
  12. METOPROLOL TARTRATE [Concomitant]
  13. PROMETHAZINE [Concomitant]
  14. SUCRALFATE [Concomitant]

REACTIONS (19)
  - ACTIVITIES OF DAILY LIVING IMPAIRED [None]
  - ANHEDONIA [None]
  - ATRIAL FIBRILLATION [None]
  - BRADYCARDIA [None]
  - CARDIAC DISORDER [None]
  - CARDIAC FAILURE CONGESTIVE [None]
  - CONGESTIVE CARDIOMYOPATHY [None]
  - DIZZINESS [None]
  - DRUG TOXICITY [None]
  - ECONOMIC PROBLEM [None]
  - EMOTIONAL DISTRESS [None]
  - EXTRASYSTOLES [None]
  - HEART RATE IRREGULAR [None]
  - MALAISE [None]
  - MULTIPLE INJURIES [None]
  - PAIN [None]
  - UNEVALUABLE EVENT [None]
  - VENTRICULAR TACHYCARDIA [None]
  - VERTIGO [None]
